FAERS Safety Report 21238225 (Version 8)
Quarter: 2024Q4

REPORT INFORMATION
  Report Type: Report from Study
  Country: ES (occurrence: ES)
  Receive Date: 20220822
  Receipt Date: 20241024
  Transmission Date: 20250115
  Serious: Yes (Hospitalization)
  Sender: ROCHE
  Company Number: ES-ROCHE-3161372

PATIENT
  Age: 62 Year
  Sex: Male
  Weight: 73.5 kg

DRUGS (11)
  1. ALECTINIB [Suspect]
     Active Substance: ALECTINIB
     Indication: Lung carcinoma cell type unspecified stage IV
     Route: 048
     Dates: start: 20220216, end: 20220831
  2. METOPROLOL [Concomitant]
     Active Substance: METOPROLOL
     Indication: Myocardial ischaemia
     Dates: start: 20220803, end: 20220810
  3. ASPIRIN [Concomitant]
     Active Substance: ASPIRIN
     Indication: Myocardial ischaemia
     Dates: start: 20220803, end: 20220810
  4. OMEPRAZOLE [Concomitant]
     Active Substance: OMEPRAZOLE
     Dates: start: 20220803, end: 20220810
  5. HEPARIN [Concomitant]
     Active Substance: HEPARIN SODIUM
     Dosage: 3500 UI
     Dates: start: 20220803, end: 20220810
  6. ATORVASTATIN [Concomitant]
     Active Substance: ATORVASTATIN
     Indication: Myocardial ischaemia
     Dates: start: 20220803, end: 20220810
  7. LORAZEPAM [Concomitant]
     Active Substance: LORAZEPAM
     Indication: Insomnia
     Dates: start: 20220803, end: 20220810
  8. ACETAMINOPHEN [Concomitant]
     Active Substance: ACETAMINOPHEN
     Indication: Pain
     Route: 048
     Dates: start: 20220803, end: 20220810
  9. ACETAMINOPHEN [Concomitant]
     Active Substance: ACETAMINOPHEN
     Indication: Pyrexia
  10. FUROSEMIDE [Concomitant]
     Active Substance: FUROSEMIDE
     Route: 048
     Dates: start: 20220803, end: 20220810
  11. FERROUS SULFATE ANHYDROUS [Concomitant]
     Active Substance: FERROUS SULFATE ANHYDROUS
     Indication: Anaemia
     Route: 048
     Dates: start: 20220708

REACTIONS (1)
  - Pleural effusion [Recovered/Resolved]

NARRATIVE: CASE EVENT DATE: 20220803
